FAERS Safety Report 15604311 (Version 2)
Quarter: 2018Q4

REPORT INFORMATION
  Report Type: Spontaneous
  Country: US (occurrence: US)
  Receive Date: 20181110
  Receipt Date: 20181123
  Transmission Date: 20190205
  Serious: No
  Sender: FDA-Public Use
  Company Number: US-BIOGEN-2018BI00654986

PATIENT

DRUGS (1)
  1. TECFIDERA [Suspect]
     Active Substance: DIMETHYL FUMARATE
     Indication: MULTIPLE SCLEROSIS
     Route: 065

REACTIONS (6)
  - Multiple sclerosis relapse [Unknown]
  - Urticaria [Unknown]
  - Rash [Unknown]
  - Pain [Unknown]
  - Malaise [Unknown]
  - Hypersensitivity [Unknown]
